FAERS Safety Report 20866287 (Version 9)
Quarter: 2024Q1

REPORT INFORMATION
  Report Type: Other
  Country: GB (occurrence: GB)
  Receive Date: 20220524
  Receipt Date: 20240210
  Transmission Date: 20240409
  Serious: Yes (Hospitalization, Other)
  Sender: FDA-Public Use
  Company Number: GB-MACLEODS PHARMA UK LTD-MAC2022035679

PATIENT

DRUGS (4)
  1. VALSARTAN [Suspect]
     Active Substance: VALSARTAN
     Indication: Product used for unknown indication
     Dosage: UNK
     Route: 065
  2. REPLAGAL [Suspect]
     Active Substance: AGALSIDASE ALFA
     Indication: Fabry^s disease
     Dosage: 14 MILLIGRAM (CONCENTRATE FOR SOLUTION FOR INFUSION)(EVERY TWO WEEK)
     Route: 042
  3. REPLAGAL [Suspect]
     Active Substance: AGALSIDASE ALFA
     Dosage: 120 MILLIGRAM (EVERY TWO WEEKS)(CONCENTRATE FOR SOLUTION FOR INFUSION)
     Route: 058
  4. REPLAGAL [Suspect]
     Active Substance: AGALSIDASE ALFA
     Dosage: 14 MILLIGRAM (EVERY TWO WEEK)
     Route: 042

REACTIONS (16)
  - Cerebrovascular accident [Not Recovered/Not Resolved]
  - Thrombotic stroke [Not Recovered/Not Resolved]
  - Paraesthesia [Recovering/Resolving]
  - Transient ischaemic attack [Unknown]
  - Poor venous access [Recovered/Resolved]
  - Catheter site related reaction [Unknown]
  - Catheter site pain [Unknown]
  - Dysgeusia [Unknown]
  - Nasopharyngitis [Recovered/Resolved]
  - Malaise [Unknown]
  - Anxiety [Unknown]
  - Blood pressure decreased [Recovered/Resolved]
  - Dizziness [Unknown]
  - Vertigo [Recovered/Resolved]
  - Therapy interrupted [Unknown]
  - Inappropriate schedule of product administration [Unknown]

NARRATIVE: CASE EVENT DATE: 20220114
